FAERS Safety Report 6155207-2 (Version None)
Quarter: 2009Q2

REPORT INFORMATION
  Report Type: 
  Country: None (occurrence: None)
  Receive Date: 20090410
  Receipt Date: 20090410
  Transmission Date: 20091009
  Serious: Yes (Other)
  Sender: FDA-Public Use
  Company Number: None

PATIENT
  Age: 48 Year
  Sex: Female
  Weight: 90.7194 kg

DRUGS (4)
  1. DIPRIVAN [Suspect]
     Indication: COLONOSCOPY
     Dates: start: 20081216, end: 20081216
  2. DIPRIVAN [Suspect]
     Indication: OESOPHAGOGASTRODUODENOSCOPY
     Dates: start: 20081216, end: 20081216
  3. DIPRIVAN [Suspect]
     Indication: COLONOSCOPY
     Dates: start: 20090407, end: 20090407
  4. DIPRIVAN [Suspect]
     Indication: OESOPHAGOGASTRODUODENOSCOPY
     Dates: start: 20090407, end: 20090407

REACTIONS (8)
  - CHILLS [None]
  - DEHYDRATION [None]
  - EYE IRRITATION [None]
  - HEADACHE [None]
  - LYMPH NODE PAIN [None]
  - MYALGIA [None]
  - PYREXIA [None]
  - VIRAL INFECTION [None]
